FAERS Safety Report 13758635 (Version 1)
Quarter: 2017Q3

REPORT INFORMATION
  Report Type: Spontaneous
  Country: US (occurrence: US)
  Receive Date: 20170716
  Receipt Date: 20170716
  Transmission Date: 20171127
  Serious: Yes (Disabling)
  Sender: FDA-Public Use
  Company Number: None

PATIENT
  Age: 74 Year
  Sex: Female
  Weight: 66.6 kg

DRUGS (13)
  1. IBANDRONATE SODIUM. [Suspect]
     Active Substance: IBANDRONATE SODIUM
     Indication: OSTEOPENIA
     Dosage: ?          OTHER STRENGTH:MG;QUANTITY:1 TABLET(S);OTHER FREQUENCY:ONE A MONTH;?
     Route: 048
     Dates: start: 20170715, end: 20170716
  2. SUPER B-COMPLEX [Concomitant]
  3. TRAMADOL. [Concomitant]
     Active Substance: TRAMADOL
  4. LIOTHYRONINE [Concomitant]
     Active Substance: LIOTHYRONINE
  5. SYNTHROID [Concomitant]
     Active Substance: LEVOTHYROXINE SODIUM
  6. SENIOR VITAMIN [Concomitant]
  7. LISINOPRIL. [Concomitant]
     Active Substance: LISINOPRIL
  8. METFORMIN HCL [Concomitant]
     Active Substance: METFORMIN HYDROCHLORIDE
  9. OMNEPRAZOLE [Concomitant]
  10. CLARITIN [Concomitant]
     Active Substance: LORATADINE
  11. FISH OIL [Concomitant]
     Active Substance: FISH OIL
  12. TRULICITY [Concomitant]
     Active Substance: DULAGLUTIDE
  13. FENOFIBRATE. [Concomitant]
     Active Substance: FENOFIBRATE

REACTIONS (7)
  - Back pain [None]
  - Musculoskeletal stiffness [None]
  - Gastrooesophageal reflux disease [None]
  - Chest pain [None]
  - Pain in extremity [None]
  - Neck pain [None]
  - Myalgia [None]

NARRATIVE: CASE EVENT DATE: 20170716
